FAERS Safety Report 10308273 (Version 1)
Quarter: 2014Q3

REPORT INFORMATION
  Report Type: Spontaneous
  Country: ES (occurrence: ES)
  Receive Date: 20140716
  Receipt Date: 20140716
  Transmission Date: 20150326
  Serious: Yes (Other)
  Sender: FDA-Public Use
  Company Number: ES-ASTRAZENECA-2014SE49739

PATIENT
  Age: 50 Year
  Sex: Female

DRUGS (1)
  1. CRESTOR [Suspect]
     Active Substance: ROSUVASTATIN CALCIUM
     Route: 048
     Dates: start: 20140505, end: 20140626

REACTIONS (3)
  - Rash [Recovering/Resolving]
  - Urticaria [Recovering/Resolving]
  - Bronchiectasis [Recovering/Resolving]

NARRATIVE: CASE EVENT DATE: 20140605
